FAERS Safety Report 6913392-6 (Version None)
Quarter: 2010Q3

REPORT INFORMATION
  Report Type: 
  Country: None (occurrence: None)
  Receive Date: 20100809
  Receipt Date: 20100728
  Transmission Date: 20110219
  Serious: Yes (Death, Hospitalization)
  Sender: FDA-Public Use
  Company Number: ES-SANOFI-AVENTIS-2010SA027904

PATIENT
  Age: 82 Year
  Sex: Male
  Weight: 68 kg

DRUGS (12)
  1. OXALIPLATIN [Suspect]
     Indication: COLORECTAL CANCER METASTATIC
     Route: 042
     Dates: start: 20080318, end: 20080318
  2. OXALIPLATIN [Suspect]
     Route: 042
     Dates: start: 20080820, end: 20080820
  3. INVESTIGATIONAL DRUG [Suspect]
     Indication: COLORECTAL CANCER METASTATIC
     Route: 042
     Dates: start: 20080318, end: 20080318
  4. INVESTIGATIONAL DRUG [Suspect]
     Route: 042
     Dates: start: 20080820, end: 20080820
  5. FLUOROURACIL [Suspect]
     Indication: COLORECTAL CANCER METASTATIC
     Route: 042
     Dates: start: 20080318, end: 20080318
  6. FLUOROURACIL [Suspect]
     Route: 042
     Dates: start: 20080820, end: 20080820
  7. FOLINIC ACID [Suspect]
     Indication: COLORECTAL CANCER METASTATIC
     Route: 042
     Dates: start: 20080318, end: 20080318
  8. FOLINIC ACID [Suspect]
     Route: 042
     Dates: start: 20080820, end: 20080820
  9. ENALAPRIL [Concomitant]
     Indication: HYPERTENSION
     Dates: end: 20080919
  10. HYDROCHLOROTHIAZIDE [Concomitant]
     Dates: end: 20080919
  11. LORAZEPAM [Concomitant]
     Indication: ANXIETY
     Dates: end: 20080919
  12. PENTOXIFYLLINE [Concomitant]
     Indication: PROPHYLAXIS
     Dates: end: 20080919

REACTIONS (1)
  - ORGANISING PNEUMONIA [None]
